FAERS Safety Report 9184222 (Version 1)
Quarter: 2012Q4

REPORT INFORMATION
  Report Type: 
  Country: BE (occurrence: BE)
  Receive Date: 20121031
  Receipt Date: 20121031
  Transmission Date: 20130627
  Serious: Yes (Hospitalization, Other)
  Sender: FDA-Public Use
  Company Number: BE-JNJFOC-20121014864

PATIENT
  Age: 80 Year
  Sex: Male

DRUGS (6)
  1. XARELTO [Suspect]
     Indication: CEREBROVASCULAR ACCIDENT PROPHYLAXIS
     Route: 065
     Dates: start: 201210, end: 20121016
  2. XARELTO [Suspect]
     Indication: ATRIAL FIBRILLATION
     Route: 065
     Dates: start: 201210, end: 20121016
  3. CALCIUM CHANNEL BLOCKERS [Concomitant]
     Route: 065
  4. BENZODIAZEPINE NOS [Concomitant]
     Route: 065
  5. CORDARONE [Concomitant]
     Route: 065
  6. THYROID [Concomitant]
     Route: 065

REACTIONS (5)
  - Drug-induced liver injury [Recovering/Resolving]
  - Rectal haemorrhage [Unknown]
  - Anaemia [Unknown]
  - Renal failure [Unknown]
  - Intentional overdose [Unknown]
